FAERS Safety Report 7979628-8 (Version None)
Quarter: 2011Q4

REPORT INFORMATION
  Report Type: 
  Country: None (occurrence: None)
  Receive Date: 20111214
  Receipt Date: 20111212
  Transmission Date: 20120403
  Serious: No
  Sender: FDA-Public Use
  Company Number: US-PFIZER INC-2011204121

PATIENT
  Sex: Female

DRUGS (1)
  1. NIFEDIPINE [Suspect]
     Dosage: UNK
     Dates: start: 20110914

REACTIONS (5)
  - RAYNAUD'S PHENOMENON [None]
  - RHINORRHOEA [None]
  - PERIPHERAL COLDNESS [None]
  - SINUS DISORDER [None]
  - DRUG INEFFECTIVE [None]
